FAERS Safety Report 8824245 (Version 4)
Quarter: 2012Q4

REPORT INFORMATION
  Report Type: 
  Country: US (occurrence: US)
  Receive Date: 20121004
  Receipt Date: 20121115
  Transmission Date: 20130627
  Serious: Yes (Hospitalization, Other)
  Sender: FDA-Public Use
  Company Number: US-009507513-2012SP034969

PATIENT

DRUGS (2)
  1. NUVARING [Suspect]
     Indication: CONTRACEPTION
     Dosage: UNK
     Route: 067
     Dates: start: 201003, end: 20100701
  2. CELEXA [Concomitant]
     Dosage: 20 mg, qd

REACTIONS (10)
  - Atrial fibrillation [Unknown]
  - Pulmonary embolism [Recovered/Resolved]
  - Coital bleeding [Unknown]
  - Menorrhagia [Unknown]
  - Vulvovaginal mycotic infection [Unknown]
  - Vomiting [Unknown]
  - Pneumonia [Unknown]
  - Nausea [Unknown]
  - Anxiety [Unknown]
  - Hypertension [Unknown]
